FAERS Safety Report 14582773 (Version 2)
Quarter: 2018Q2

REPORT INFORMATION
  Report Type: Report from Study
  Country: US (occurrence: US)
  Receive Date: 20180228
  Receipt Date: 20180615
  Transmission Date: 20180711
  Serious: Yes (Other)
  Sender: FDA-Public Use
  Company Number: PHEH2018US007295

PATIENT
  Sex: Female

DRUGS (1)
  1. COSENTYX [Suspect]
     Active Substance: SECUKINUMAB
     Indication: PSORIASIS
     Dosage: 300 MG, QMO
     Route: 058

REACTIONS (6)
  - Memory impairment [Unknown]
  - Weight decreased [Unknown]
  - Stress [Unknown]
  - Skin lesion [Unknown]
  - Diabetes mellitus [Unknown]
  - Wrong technique in product usage process [Unknown]
